FAERS Safety Report 4889581-1 (Version None)
Quarter: 2006Q1

REPORT INFORMATION
  Report Type: 
  Country: None (occurrence: None)
  Receive Date: 20060120
  Receipt Date: 20060109
  Transmission Date: 20060701
  Serious: Yes (Other)
  Sender: FDA-Public Use
  Company Number: 2006-009

PATIENT
  Age: 42 Year
  Sex: Female

DRUGS (3)
  1. SUMAMED (AZITHROMYCIN) 500MG TABLETS [Suspect]
     Indication: ACUTE TONSILLITIS
     Dosage: 1 TABLET ONCE DAILY
     Dates: start: 20051021, end: 20051023
  2. ETHINYL ESTRADIOL TAB [Concomitant]
  3. LEVONORGESTREL [Concomitant]

REACTIONS (2)
  - MENORRHAGIA [None]
  - OLIGOMENORRHOEA [None]
